FAERS Safety Report 10906042 (Version 2)
Quarter: 2015Q1

REPORT INFORMATION
  Report Type: Spontaneous
  Country: US (occurrence: None)
  Receive Date: 20150220
  Receipt Date: 20150319
  Transmission Date: 20150721
  Serious: No
  Sender: FDA-Public Use
  Company Number: LIT-019-15-US

PATIENT
  Age: 6 Year
  Sex: Male

DRUGS (3)
  1. ACTIVATED PROTHROMBIN COMPLEX CONCENTRATE [Concomitant]
  2. RECOMBINANT COAGULATION FACTOR VIII [Concomitant]
  3. HUMAN COAGULATION FACTOR VIII/VON WILLEBRAND FACTOR COMPLEX [Suspect]
     Active Substance: HUMAN COAGULATION FACTOR VIII/VON WILLEBRAND FACTOR COMPLEX
     Indication: IMMUNE TOLERANCE INDUCTION
     Route: 042

REACTIONS (8)
  - Pulmonary embolism [None]
  - Haemorrhage [None]
  - Device malfunction [None]
  - Staphylococcal infection [None]
  - Vena cava thrombosis [None]
  - Infection [None]
  - Injury [None]
  - Device related infection [None]
